FAERS Safety Report 9441597 (Version 1)
Quarter: 2013Q3

REPORT INFORMATION
  Report Type: Spontaneous
  Country: US (occurrence: US)
  Receive Date: 20130806
  Receipt Date: 20130806
  Transmission Date: 20140515
  Serious: Yes (Other)
  Sender: FDA-Public Use
  Company Number: US-JNJFOC-20130717569

PATIENT
  Sex: Female

DRUGS (2)
  1. IBUPROFEN [Suspect]
     Route: 065
  2. IBUPROFEN [Suspect]
     Indication: PRODUCT USED FOR UNKNOWN INDICATION
     Route: 065

REACTIONS (5)
  - Multiple sclerosis [Unknown]
  - Foot fracture [Unknown]
  - Pain [Unknown]
  - Dizziness [Unknown]
  - Local swelling [Not Recovered/Not Resolved]
